FAERS Safety Report 10480478 (Version 1)
Quarter: 2014Q3

REPORT INFORMATION
  Report Type: Spontaneous
  Country: FR (occurrence: FR)
  Receive Date: 20140929
  Receipt Date: 20140929
  Transmission Date: 20150326
  Serious: Yes (Life-Threatening, Hospitalization, Other)
  Sender: FDA-Public Use
  Company Number: FR-TEVA-510141ISR

PATIENT
  Age: 47 Year
  Sex: Female

DRUGS (3)
  1. PARACETAMOL [Concomitant]
     Active Substance: ACETAMINOPHEN
     Indication: INFLUENZA LIKE ILLNESS
     Route: 065
  2. IBUPROFEN. [Suspect]
     Active Substance: IBUPROFEN
     Indication: INFLUENZA LIKE ILLNESS
     Route: 065
  3. TETRAZEPAM [Suspect]
     Active Substance: TETRAZEPAM
     Indication: INFLUENZA LIKE ILLNESS
     Route: 065

REACTIONS (10)
  - Dyspnoea [Unknown]
  - Skin hyperpigmentation [Unknown]
  - Myocarditis [Unknown]
  - Encephalitis [Unknown]
  - Xeroderma [Unknown]
  - Acute generalised exanthematous pustulosis [Recovered/Resolved with Sequelae]
  - Hypoxia [Unknown]
  - Skin hypopigmentation [Unknown]
  - Cardiogenic shock [Unknown]
  - Hypertrophic scar [Unknown]
